FAERS Safety Report 8186933-1 (Version None)
Quarter: 2012Q1

REPORT INFORMATION
  Report Type: 
  Country: None (occurrence: None)
  Receive Date: 20120306
  Receipt Date: 20120229
  Transmission Date: 20120608
  Serious: Yes (Hospitalization)
  Sender: FDA-Public Use
  Company Number: US-UCBSA-018937

PATIENT
  Age: 26 Year
  Sex: Male
  Weight: 82 kg

DRUGS (4)
  1. LACOSAMIDE [Suspect]
     Indication: EPILEPSY
     Route: 048
     Dates: start: 20100826
  2. NEURONTIN [Concomitant]
     Dates: start: 19890101
  3. TOPAMAX [Concomitant]
     Dates: start: 20050101
  4. NEURONTIN [Concomitant]
     Dates: start: 19890101

REACTIONS (1)
  - COMPLEX PARTIAL SEIZURES [None]
